FAERS Safety Report 6655723-0 (Version None)
Quarter: 2010Q1

REPORT INFORMATION
  Report Type: 
  Country: None (occurrence: None)
  Receive Date: 20100326
  Receipt Date: 20100326
  Transmission Date: 20100710
  Serious: Yes (Hospitalization)
  Sender: FDA-Public Use
  Company Number: None

PATIENT
  Age: 63 Year
  Sex: Female
  Weight: 54.4316 kg

DRUGS (2)
  1. TAMIFLU [Suspect]
     Indication: INFLUENZA
     Dosage: 75 MG 1 CAP AM + PM
     Dates: start: 20100304
  2. TAMIFLU [Suspect]
     Indication: INFLUENZA
     Dosage: 75 MG 1 CAP AM + PM
     Dates: start: 20100305

REACTIONS (2)
  - RASH [None]
  - URTICARIA [None]
